FAERS Safety Report 9838870 (Version 2)
Quarter: 2014Q1

REPORT INFORMATION
  Report Type: Spontaneous
  Country: CA (occurrence: CA)
  Receive Date: 20140123
  Receipt Date: 20140123
  Transmission Date: 20141002
  Serious: No
  Sender: FDA-Public Use
  Company Number: CA-009507513-1401CAN003219

PATIENT
  Age: 51 Year
  Sex: Male

DRUGS (3)
  1. VICTRELIS [Suspect]
     Indication: CHRONIC HEPATITIS C
     Dosage: 800 MG, THRICE DAILY
     Route: 048
     Dates: start: 20130423
  2. PEGASYS [Suspect]
     Indication: CHRONIC HEPATITIS C
     Dosage: 180 MICROGRAM, ONCE A WEEK
     Route: 058
     Dates: start: 20130423
  3. COPEGUS [Suspect]
     Indication: CHRONIC HEPATITIS C
     Dosage: 1400 MG, ONCE DAILY (49 TABLETS/WEEK)
     Route: 048
     Dates: start: 20130424

REACTIONS (2)
  - Malaise [Unknown]
  - Drug dose omission [Unknown]
